FAERS Safety Report 4779189-0 (Version None)
Quarter: 2005Q3

REPORT INFORMATION
  Report Type: 
  Country: None (occurrence: None)
  Receive Date: 20050926
  Receipt Date: 20050916
  Transmission Date: 20060218
  Serious: Yes (Hospitalization)
  Sender: FDA-Public Use
  Company Number: US-MERCK-0509USA02366

PATIENT
  Age: 60 Year
  Sex: Male
  Weight: 86 kg

DRUGS (7)
  1. VIOXX [Suspect]
     Indication: BACK PAIN
     Route: 048
     Dates: start: 20000607, end: 20040327
  2. PLAVIX [Concomitant]
     Route: 065
  3. LIPITOR [Concomitant]
     Route: 065
  4. ASPIRIN [Concomitant]
     Route: 065
  5. TOPROL-XL [Concomitant]
     Route: 065
  6. FOLIC ACID [Concomitant]
     Route: 065
  7. [THERAPY UNSPECIFIED] [Concomitant]
     Route: 065

REACTIONS (10)
  - ACUTE MYOCARDIAL INFARCTION [None]
  - ATHEROSCLEROSIS [None]
  - ATRIOVENTRICULAR BLOCK FIRST DEGREE [None]
  - CHEST PAIN [None]
  - CORONARY ARTERY OCCLUSION [None]
  - HYPERCHOLESTEROLAEMIA [None]
  - HYPERTENSIVE HEART DISEASE [None]
  - NEPHROLITHIASIS [None]
  - OVERDOSE [None]
  - SINUS ARRHYTHMIA [None]
